FAERS Safety Report 6212997-8 (Version None)
Quarter: 2009Q2

REPORT INFORMATION
  Report Type: 
  Country: None (occurrence: None)
  Receive Date: 20090603
  Receipt Date: 20090525
  Transmission Date: 20091009
  Serious: Yes (Other)
  Sender: FDA-Public Use
  Company Number: SE-ABBOTT-09P-150-0575540-00

PATIENT
  Sex: Male

DRUGS (1)
  1. ERGENYL [Suspect]
     Indication: BIPOLAR DISORDER

REACTIONS (9)
  - ANXIETY [None]
  - BLOOD PRESSURE FLUCTUATION [None]
  - DELUSION [None]
  - DEPRESSION [None]
  - LIVER DISORDER [None]
  - PSYCHOTIC DISORDER [None]
  - RENAL DISORDER [None]
  - SOCIAL PHOBIA [None]
  - WEIGHT FLUCTUATION [None]
